FAERS Safety Report 6105867-7 (Version None)
Quarter: 2009Q1

REPORT INFORMATION
  Report Type: 
  Country: None (occurrence: None)
  Receive Date: 20090306
  Receipt Date: 20090226
  Transmission Date: 20090719
  Serious: Yes (Hospitalization)
  Sender: FDA-Public Use
  Company Number: FR-BRISTOL-MYERS SQUIBB COMPANY-14532196

PATIENT
  Age: 77 Year
  Sex: Male

DRUGS (16)
  1. ERBITUX [Suspect]
     Indication: LUNG NEOPLASM
     Route: 042
     Dates: start: 20080725, end: 20080725
  2. ERBITUX [Suspect]
     Indication: METASTASES TO LIVER
     Route: 042
     Dates: start: 20080725, end: 20080725
  3. ERBITUX [Suspect]
     Indication: ADRENAL DISORDER
     Route: 042
     Dates: start: 20080725, end: 20080725
  4. ERBITUX [Suspect]
     Indication: SYNOVIAL CYST
     Route: 042
     Dates: start: 20080725, end: 20080725
  5. AVASTIN [Suspect]
     Indication: METASTASES TO LIVER
     Dosage: SOLN FOR INJ
     Route: 042
     Dates: start: 20080725, end: 20080725
  6. AVASTIN [Suspect]
     Indication: LUNG NEOPLASM
     Dosage: SOLN FOR INJ
     Route: 042
     Dates: start: 20080725, end: 20080725
  7. AVASTIN [Suspect]
     Indication: ADRENAL DISORDER
     Dosage: SOLN FOR INJ
     Route: 042
     Dates: start: 20080725, end: 20080725
  8. AVASTIN [Suspect]
     Indication: SYNOVIAL CYST
     Dosage: SOLN FOR INJ
     Route: 042
     Dates: start: 20080725, end: 20080725
  9. OXALIPLATIN [Suspect]
     Indication: METASTASES TO LIVER
     Route: 042
     Dates: start: 20080725, end: 20080725
  10. OXALIPLATIN [Suspect]
     Indication: LUNG NEOPLASM
     Route: 042
     Dates: start: 20080725, end: 20080725
  11. OXALIPLATIN [Suspect]
     Indication: ADRENAL DISORDER
     Route: 042
     Dates: start: 20080725, end: 20080725
  12. OXALIPLATIN [Suspect]
     Indication: SYNOVIAL CYST
     Route: 042
     Dates: start: 20080725, end: 20080725
  13. FLUOROURACIL [Suspect]
     Indication: METASTASES TO LIVER
     Route: 042
     Dates: start: 20080725, end: 20080725
  14. FLUOROURACIL [Suspect]
     Indication: LUNG NEOPLASM
     Route: 042
     Dates: start: 20080725, end: 20080725
  15. FLUOROURACIL [Suspect]
     Indication: ADRENAL DISORDER
     Route: 042
     Dates: start: 20080725, end: 20080725
  16. FLUOROURACIL [Suspect]
     Indication: SYNOVIAL CYST
     Route: 042
     Dates: start: 20080725, end: 20080725

REACTIONS (12)
  - ANOREXIA [None]
  - DERMATITIS ACNEIFORM [None]
  - FATIGUE [None]
  - HYPERTENSION [None]
  - HYPOALBUMINAEMIA [None]
  - HYPOCALCAEMIA [None]
  - HYPOKALAEMIA [None]
  - HYPOMAGNESAEMIA [None]
  - NAUSEA [None]
  - RADIATION MUCOSITIS [None]
  - VOMITING [None]
  - WEIGHT DECREASED [None]
